FAERS Safety Report 6437034-1 (Version None)
Quarter: 2009Q4

REPORT INFORMATION
  Report Type: 
  Country: None (occurrence: None)
  Receive Date: 20091112
  Receipt Date: 20091103
  Transmission Date: 20100525
  Serious: Yes (Other)
  Sender: FDA-Public Use
  Company Number: US-JNJFOC-20091101496

PATIENT
  Age: 21 Year
  Sex: Female

DRUGS (4)
  1. HALOPERIDOL [Suspect]
     Route: 042
  2. HALOPERIDOL [Suspect]
     Indication: SEDATION
     Route: 042
  3. DROPERIDOL [Suspect]
     Indication: SEDATION
     Route: 065
  4. METOCLOPRAMIDE [Suspect]
     Indication: SEDATION
     Route: 042

REACTIONS (4)
  - DISORIENTATION [None]
  - NEUROLEPTIC MALIGNANT SYNDROME [None]
  - STARING [None]
  - UNRESPONSIVE TO STIMULI [None]
